FAERS Safety Report 13534233 (Version 1)
Quarter: 2017Q2

REPORT INFORMATION
  Report Type: Spontaneous
  Country: None (occurrence: US)
  Receive Date: 20170510
  Receipt Date: 20170510
  Transmission Date: 20170830
  Serious: No
  Sender: FDA-Public Use
  Company Number: US-SPEAR PHARMACEUTICALS-2020564

PATIENT
  Age: 70 Year
  Sex: Female
  Weight: 59.09 kg

DRUGS (1)
  1. FLUOROURACIL. [Suspect]
     Active Substance: FLUOROURACIL
     Indication: ACTINIC KERATOSIS
     Route: 061
     Dates: start: 20160701, end: 20160710

REACTIONS (7)
  - Rash [None]
  - Unevaluable event [Unknown]
  - Skin irritation [None]
  - Pruritus [None]
  - Skin hyperpigmentation [None]
  - Dermatitis contact [None]
  - Pain [None]

NARRATIVE: CASE EVENT DATE: 20160701
